FAERS Safety Report 14261812 (Version 5)
Quarter: 2020Q1

REPORT INFORMATION
  Report Type: Spontaneous
  Country: JP (occurrence: JP)
  Receive Date: 20171208
  Receipt Date: 20200311
  Transmission Date: 20200409
  Serious: Yes (Hospitalization, Other)
  Sender: FDA-Public Use
  Company Number: JP-CELGENEUS-JPN-20171109785

PATIENT
  Age: 56 Year
  Sex: Male

DRUGS (8)
  1. PROPETO [Concomitant]
     Active Substance: PETROLATUM
     Indication: PSORIASIS
     Route: 062
     Dates: start: 20171107
  2. OTEZLA [Suspect]
     Active Substance: APREMILAST
     Dosage: 60 MILLIGRAM
     Route: 048
     Dates: start: 201709, end: 201709
  3. PETROLATUM HYDROPHILIC [Concomitant]
     Indication: PSORIASIS
     Route: 062
     Dates: start: 20171016
  4. OTEZLA [Suspect]
     Active Substance: APREMILAST
     Dosage: 60 MILLIGRAM
     Route: 048
     Dates: start: 201709, end: 20171114
  5. OTEZLA [Suspect]
     Active Substance: APREMILAST
     Indication: PSORIASIS
     Dosage: UPWARD TITRATION
     Route: 048
     Dates: start: 20170905, end: 201709
  6. OXAROL [Concomitant]
     Active Substance: MAXACALCITOL
     Indication: PSORIASIS
     Route: 062
     Dates: start: 20171010
  7. DOVOBET [Concomitant]
     Active Substance: BETAMETHASONE\CALCIPOTRIENE
     Indication: PSORIASIS
     Route: 062
     Dates: start: 20170905
  8. TEXMETEN [Concomitant]
     Indication: PSORIASIS
     Route: 062
     Dates: start: 20171016

REACTIONS (2)
  - Pustular psoriasis [Unknown]
  - Cellulitis [Recovering/Resolving]

NARRATIVE: CASE EVENT DATE: 201711
